FAERS Safety Report 8821361 (Version 2)
Quarter: 2013Q1

REPORT INFORMATION
  Report Type: Spontaneous
  Country: US (occurrence: US)
  Receive Date: 20121002
  Receipt Date: 20130122
  Transmission Date: 20140127
  Serious: Yes (Other)
  Sender: FDA-Public Use
  Company Number: US-ELI_LILLY_AND_COMPANY-US201209005388

PATIENT
  Sex: Female
  Weight: 55.33 kg

DRUGS (3)
  1. CYMBALTA [Suspect]
     Indication: ANXIETY
     Dosage: 60 MG, QD
     Dates: start: 2009, end: 201208
  2. ALDOMET [Concomitant]
     Indication: HYPERTENSION
     Dosage: 250 MG, QD
     Dates: start: 2006
  3. ALDOMET [Concomitant]
     Dosage: 500 MG, BID

REACTIONS (4)
  - Abortion spontaneous [Unknown]
  - Subchorionic haemorrhage [Recovered/Resolved]
  - Vaginal haemorrhage [Unknown]
  - Exposure during pregnancy [Unknown]
